FAERS Safety Report 17111798 (Version 1)
Quarter: 2019Q4

REPORT INFORMATION
  Report Type: Spontaneous
  Country: US (occurrence: US)
  Receive Date: 20191203
  Receipt Date: 20191203
  Transmission Date: 20200122
  Serious: No
  Sender: FDA-Public Use
  Company Number: None

PATIENT
  Age: 28 Year
  Sex: Female
  Weight: 40.95 kg

DRUGS (1)
  1. CLONAZEPAM. [Suspect]
     Active Substance: CLONAZEPAM
     Indication: PANIC DISORDER
     Dates: start: 20190805, end: 20191118

REACTIONS (13)
  - Alopecia [None]
  - Heart rate irregular [None]
  - Bowel movement irregularity [None]
  - Fungal infection [None]
  - Pityriasis rosea [None]
  - Presyncope [None]
  - Musculoskeletal stiffness [None]
  - Product substitution issue [None]
  - Monocyte count increased [None]
  - Hypertension [None]
  - Dizziness [None]
  - Confusional state [None]
  - Mood swings [None]

NARRATIVE: CASE EVENT DATE: 20190805
